FAERS Safety Report 22103469 (Version 1)
Quarter: 2023Q1

REPORT INFORMATION
  Report Type: Spontaneous
  Country: US (occurrence: None)
  Receive Date: 20230316
  Receipt Date: 20230316
  Transmission Date: 20230418
  Serious: Yes (Disabling)
  Sender: FDA-Public Use
  Company Number: None

PATIENT
  Age: 34 Year
  Sex: Female
  Weight: 62.1 kg

DRUGS (1)
  1. PROPRANOLOL [Suspect]
     Active Substance: PROPRANOLOL HYDROCHLORIDE
     Indication: Anxiety

REACTIONS (8)
  - Vomiting projectile [None]
  - Disorientation [None]
  - Heart rate irregular [None]
  - Irregular breathing [None]
  - Dizziness [None]
  - Hyperhidrosis [None]
  - Body temperature decreased [None]
  - Loss of consciousness [None]

NARRATIVE: CASE EVENT DATE: 20230315
